FAERS Safety Report 4459890-9 (Version None)
Quarter: 2004Q3

REPORT INFORMATION
  Report Type: 
  Country: None (occurrence: None)
  Receive Date: 20040928
  Receipt Date: 20030825
  Transmission Date: 20050211
  Serious: Yes (Other)
  Sender: FDA-Public Use
  Company Number: US-GLAXOSMITHKLINE-A0423374A

PATIENT
  Age: 82 Year
  Sex: Female
  Weight: 45.5 kg

DRUGS (9)
  1. SEREVENT [Suspect]
     Indication: ASTHMA
     Dosage: 1PUFF TWICE PER DAY
     Route: 055
     Dates: start: 20030801, end: 20030803
  2. FUROSEMIDE [Concomitant]
  3. DIGOXIN [Concomitant]
  4. AVAPRO [Concomitant]
  5. HIPREX [Concomitant]
  6. LIORESAL [Concomitant]
  7. MULTIVITAMIN [Concomitant]
  8. ACTONEL [Concomitant]
  9. CALCIUM [Concomitant]

REACTIONS (4)
  - ASTHMA [None]
  - DRUG INEFFECTIVE [None]
  - NAUSEA [None]
  - STOMATITIS [None]
